FAERS Safety Report 6717528-1 (Version None)
Quarter: 2010Q2

REPORT INFORMATION
  Report Type: 
  Country: None (occurrence: None)
  Receive Date: 20100503
  Receipt Date: 20100429
  Transmission Date: 20101027
  Serious: Yes (Hospitalization)
  Sender: FDA-Public Use
  Company Number: SP02906

PATIENT
  Sex: Female

DRUGS (5)
  1. COLAZAL [Suspect]
     Indication: COLITIS ULCERATIVE
     Dosage: 6750 MG (2250 MG, 3 IN 1 D), ORAL
     Route: 048
  2. FLUCONAZOLE [Concomitant]
  3. IBANDRONATE SODIUM [Concomitant]
  4. VITAMIN B-12 [Concomitant]
  5. CALCIUM [Concomitant]

REACTIONS (2)
  - ABDOMINAL PAIN [None]
  - NEUTROPENIA [None]
